FAERS Safety Report 9283952 (Version 1)
Quarter: 2013Q2

REPORT INFORMATION
  Report Type: Spontaneous
  Country: US (occurrence: US)
  Receive Date: 20130510
  Receipt Date: 20130510
  Transmission Date: 20140414
  Serious: No
  Sender: FDA-Public Use
  Company Number: US-COVIDIEN/TYCO HEALTHCARE/MALLINCKRODT-T201301390

PATIENT
  Age: 52 Year
  Sex: Female
  Weight: 54.42 kg

DRUGS (6)
  1. FENTANYL TRANSDERMAL SYSTEM [Suspect]
     Indication: PAIN
     Dosage: 100 MCG/HR , QOD
     Route: 062
     Dates: start: 201210
  2. METOPROLOL [Concomitant]
     Indication: MITRAL VALVE PROLAPSE
     Dosage: UNK
  3. PREMARIN [Concomitant]
     Indication: HORMONE REPLACEMENT THERAPY
     Dosage: UNK
  4. AMBIEN [Concomitant]
     Indication: INSOMNIA
     Dosage: UNK
  5. PERCOCET                           /00867901/ [Concomitant]
     Indication: PAIN
     Dosage: UNK
  6. ALBUTEROL                          /00139501/ [Concomitant]
     Indication: CHRONIC OBSTRUCTIVE PULMONARY DISEASE
     Dosage: UNK

REACTIONS (4)
  - Drug withdrawal syndrome [Not Recovered/Not Resolved]
  - Breast pain [Recovering/Resolving]
  - Application site pain [Recovered/Resolved]
  - Application site burn [Unknown]
